FAERS Safety Report 16031302 (Version 1)
Quarter: 2019Q1

REPORT INFORMATION
  Report Type: Spontaneous
  Country: JP (occurrence: JP)
  Receive Date: 20190304
  Receipt Date: 20190304
  Transmission Date: 20190418
  Serious: Yes (Other)
  Sender: FDA-Public Use
  Company Number: JP-PFIZER INC-2019087549

PATIENT
  Sex: Female

DRUGS (1)
  1. TOVIAZ [Suspect]
     Active Substance: FESOTERODINE FUMARATE
     Indication: HYPERTONIC BLADDER
     Dosage: 4 MG, DAILY
     Route: 048
     Dates: start: 201901, end: 201901

REACTIONS (1)
  - Dementia [Recovered/Resolved]

NARRATIVE: CASE EVENT DATE: 201901
